FAERS Safety Report 9170685 (Version 1)
Quarter: 2013Q1

REPORT INFORMATION
  Report Type: Spontaneous
  Country: US (occurrence: None)
  Receive Date: 20130315
  Receipt Date: 20130315
  Transmission Date: 20140127
  Serious: No
  Sender: FDA-Public Use
  Company Number: None

PATIENT
  Age: 36 Year
  Sex: Female
  Weight: 72.58 kg

DRUGS (23)
  1. CRESTOR [Suspect]
     Dosage: PO/PG SINGLE DOESE
     Dates: start: 20130124
  2. CRESTOR [Suspect]
     Indication: ACUTE RESPIRATORY DISTRESS SYNDROME
     Route: 048
     Dates: start: 20130125
  3. CRESTOR [Suspect]
     Indication: SEPSIS
     Route: 048
     Dates: start: 20130125
  4. AZITHROMYCIN [Concomitant]
  5. LEVOFLOXIN [Concomitant]
  6. MEROPENEM [Concomitant]
  7. PIPERACILLIN-TAZOBACTAM [Concomitant]
  8. VANCOMYCIN [Concomitant]
  9. FUROSEMIDE [Concomitant]
  10. ACETAMINOPHEN [Concomitant]
  11. ADENOSINE [Concomitant]
  12. CHLOROTHIAZIDE I/29 [Concomitant]
  13. EPOPROSTENOL INHALATION [Concomitant]
  14. FAMOTIDINE [Concomitant]
  15. FENTANYL [Concomitant]
  16. FLUCONAZOLE [Concomitant]
  17. HALOPERIDOL LACTATE [Concomitant]
  18. HEPARIN [Concomitant]
  19. INSULIN [Concomitant]
  20. METHYLPREDINISOLONE [Concomitant]
  21. OMEPRAZOLE SUSPENSION [Concomitant]
  22. ODANSETRON [Concomitant]
  23. POLYETHYLENE MIRALAX [Concomitant]

REACTIONS (3)
  - Hyperpyrexia [None]
  - Clostridium difficile infection [None]
  - White blood cell count increased [None]
